FAERS Safety Report 6642127-X (Version None)
Quarter: 2010Q2

REPORT INFORMATION
  Report Type: 
  Country: None (occurrence: None)
  Receive Date: 20100319
  Receipt Date: 20100309
  Transmission Date: 20101027
  Serious: Yes (Hospitalization)
  Sender: FDA-Public Use
  Company Number: US-BAXTER-2009BH019910

PATIENT
  Age: 58 Year
  Sex: Female
  Weight: 89 kg

DRUGS (4)
  1. ARTISS [Suspect]
     Indication: FACE LIFT
     Route: 065
     Dates: start: 20091215, end: 20091215
  2. OTHER ANTIDEPRESSANTS [Concomitant]
     Indication: DEPRESSION
     Route: 048
     Dates: start: 20091211
  3. XANAX [Concomitant]
     Indication: SLEEP DISORDER THERAPY
     Route: 048
     Dates: start: 20091211
  4. METHYLPREDNISOLONE [Concomitant]
     Indication: INFECTION PROPHYLAXIS
     Route: 048
     Dates: start: 20091222, end: 20091201

REACTIONS (2)
  - STAPHYLOCOCCAL INFECTION [None]
  - WOUND ABSCESS [None]
